FAERS Safety Report 15820503 (Version 1)
Quarter: 2019Q1

REPORT INFORMATION
  Report Type: Spontaneous
  Country: US (occurrence: US)
  Receive Date: 20190111
  Receipt Date: 20190111
  Transmission Date: 20190417
  Serious: Yes (Other)
  Sender: FDA-Public Use
  Company Number: None

PATIENT
  Age: 7 Month
  Sex: Female
  Weight: 8.55 kg

DRUGS (1)
  1. INFANTS IBUPROFEN [Suspect]
     Active Substance: IBUPROFEN
     Indication: PYREXIA
     Dosage: ?          QUANTITY:1.25 ML;?
     Route: 048
     Dates: start: 20190111, end: 20190111

REACTIONS (3)
  - Recalled product [None]
  - Vomiting [None]
  - Choking [None]

NARRATIVE: CASE EVENT DATE: 20190111
